FAERS Safety Report 23334852 (Version 1)
Quarter: 2023Q4

REPORT INFORMATION
  Report Type: Spontaneous
  Country: JP (occurrence: JP)
  Receive Date: 20231224
  Receipt Date: 20231224
  Transmission Date: 20240109
  Serious: Yes (Hospitalization)
  Sender: FDA-Public Use
  Company Number: JP-Merck Healthcare KGaA-2023494925

PATIENT
  Sex: Male

DRUGS (3)
  1. GONAL-F [Suspect]
     Active Substance: FOLLITROPIN
     Indication: Short stature
     Route: 058
  2. OVIDREL [Suspect]
     Active Substance: CHORIOGONADOTROPIN ALFA
     Indication: Product used for unknown indication
     Route: 058
  3. METHENOLONE ACETATE [Suspect]
     Active Substance: METHENOLONE ACETATE
     Indication: Product used for unknown indication

REACTIONS (2)
  - Gynaecomastia [Unknown]
  - Off label use [Unknown]
